FAERS Safety Report 5786432-8 (Version None)
Quarter: 2008Q2

REPORT INFORMATION
  Report Type: 
  Country: None (occurrence: None)
  Receive Date: 20080624
  Receipt Date: 20080616
  Transmission Date: 20081010
  Serious: Yes (Hospitalization, Other)
  Sender: FDA-Public Use
  Company Number: FR-PFIZER INC-2008005675

PATIENT
  Sex: Female
  Weight: 64 kg

DRUGS (6)
  1. SU-011,248 [Suspect]
     Indication: BREAST CANCER
     Route: 048
     Dates: start: 20071226, end: 20080114
  2. CAPECITABINE [Suspect]
     Indication: BREAST CANCER
     Route: 048
     Dates: start: 20071226, end: 20080108
  3. OMEPRAZOLE [Concomitant]
     Route: 048
  4. ONDANSETRON [Concomitant]
     Route: 048
     Dates: start: 20071227, end: 20080114
  5. SOLUPRED [Concomitant]
     Route: 048
     Dates: start: 20080114
  6. ACETAMINOPHEN [Concomitant]
     Route: 048
     Dates: start: 20071101

REACTIONS (3)
  - CONDITION AGGRAVATED [None]
  - CYTOLYTIC HEPATITIS [None]
  - PLEURAL EFFUSION [None]
